FAERS Safety Report 16381860 (Version 1)
Quarter: 2019Q2

REPORT INFORMATION
  Report Type: Report from Study
  Country: DE (occurrence: US)
  Receive Date: 20190603
  Receipt Date: 20190603
  Transmission Date: 20190711
  Serious: Yes (Hospitalization, Other)
  Sender: FDA-Public Use
  Company Number: DE-ROCHE-2325001

PATIENT
  Age: 38 Year
  Sex: Male
  Weight: 89 kg

DRUGS (7)
  1. RANITIDINE. [Concomitant]
     Active Substance: RANITIDINE
     Route: 048
     Dates: start: 20180819, end: 20190226
  2. OCRELIZUMAB. [Suspect]
     Active Substance: OCRELIZUMAB
     Indication: PRODUCT USED FOR UNKNOWN INDICATION
     Route: 065
     Dates: start: 20180820
  3. DEKRISTOL [Concomitant]
     Active Substance: CHOLECALCIFEROL
     Indication: VITAMIN D DEFICIENCY
     Route: 048
     Dates: start: 20160101
  4. AERIUS (DESLORATADINE) [Concomitant]
     Active Substance: DESLORATADINE
     Route: 048
     Dates: start: 20180819, end: 20190226
  5. ZOPICLON [Concomitant]
     Active Substance: ZOPICLONE
     Dosage: AS REQUIRED
     Route: 048
     Dates: start: 20160101
  6. PREDNISOLUT [PREDNISOLONE HEMISUCCINATE] [Concomitant]
     Route: 042
     Dates: start: 20180820, end: 20190225
  7. FINGOLIMOD. [Concomitant]
     Active Substance: FINGOLIMOD
     Route: 065
     Dates: start: 201605, end: 201805

REACTIONS (3)
  - Panic attack [Recovered/Resolved]
  - Chest pain [Unknown]
  - Stress [Not Recovered/Not Resolved]

NARRATIVE: CASE EVENT DATE: 20180827
